FAERS Safety Report 14217720 (Version 2)
Quarter: 2018Q1

REPORT INFORMATION
  Report Type: Spontaneous
  Country: US (occurrence: US)
  Receive Date: 20171123
  Receipt Date: 20180110
  Transmission Date: 20180508
  Serious: No
  Sender: FDA-Public Use
  Company Number: US-PFIZER INC-2017504247

PATIENT
  Age: 73 Year
  Sex: Female
  Weight: 78.5 kg

DRUGS (2)
  1. PREMARIN [Suspect]
     Active Substance: ESTROGENS, CONJUGATED
     Indication: LICHEN SCLEROSUS
     Dosage: ALTERNATE DAY
     Dates: start: 2014
  2. PREMARIN [Suspect]
     Active Substance: ESTROGENS, CONJUGATED
     Dosage: 0.625 MG, UNK
     Route: 067
     Dates: start: 2014

REACTIONS (1)
  - Drug ineffective for unapproved indication [Unknown]
